FAERS Safety Report 15525541 (Version 1)
Quarter: 2018Q4

REPORT INFORMATION
  Report Type: Spontaneous
  Country: FR (occurrence: FR)
  Receive Date: 20181018
  Receipt Date: 20181018
  Transmission Date: 20190205
  Serious: Yes (Hospitalization)
  Sender: FDA-Public Use
  Company Number: FR-EMD SERONO-9047113

PATIENT
  Age: 36 Year
  Sex: Female

DRUGS (2)
  1. OVITRELLE [Suspect]
     Active Substance: CHORIOGONADOTROPIN ALFA
     Indication: IN VITRO FERTILISATION
  2. DECAPEPTYL                         /00486501/ [Suspect]
     Active Substance: GONADORELIN
     Indication: IN VITRO FERTILISATION

REACTIONS (9)
  - Abdominal pain [Unknown]
  - Dyspepsia [Unknown]
  - Blood pressure decreased [Unknown]
  - Abdominal distension [Unknown]
  - Extra dose administered [Unknown]
  - Ovarian hyperstimulation syndrome [Unknown]
  - Swelling [Unknown]
  - Hypokinesia [Unknown]
  - Ovarian disorder [Unknown]

NARRATIVE: CASE EVENT DATE: 2017
